FAERS Safety Report 12195585 (Version 3)
Quarter: 2017Q1

REPORT INFORMATION
  Report Type: Report from Study
  Country: NL (occurrence: NL)
  Receive Date: 20160321
  Receipt Date: 20170320
  Transmission Date: 20170428
  Serious: Yes (Hospitalization)
  Sender: FDA-Public Use
  Company Number: NL-TEVA-644341ISR

PATIENT
  Age: 62 Year
  Sex: Female

DRUGS (7)
  1. FOLINIC ACID [Suspect]
     Active Substance: LEUCOVORIN
     Indication: PANCREATIC CARCINOMA
     Dosage: LAST ADMINISTRATION DATE BEFORE AE OCCURENCE 22-FEB-2016
     Route: 042
     Dates: start: 20151109
  2. FLUOROURACIL. [Suspect]
     Active Substance: FLUOROURACIL
     Dosage: LAST ADMINISTRATION DATE BEFORE AE OCCURENCE 22-FEB-2016, DOSIS: 2850MG
     Route: 042
     Dates: start: 20160208
  3. IRINOTECAN [Suspect]
     Active Substance: IRINOTECAN
     Indication: PANCREATIC CARCINOMA
     Dosage: LAST ADMINISTRATION DATE BEFORE AE OCCURENCE 22-FEB-2016
     Route: 042
     Dates: start: 20151109
  4. LONQUEX 6MG OPLOSSING VOOR INJECTIE [Suspect]
     Active Substance: LIPEGFILGRASTIM
     Indication: PROPHYLAXIS
     Dosage: 6 MILLIGRAM DAILY; LAST ADMINISTRATION DATE BEFORE AE OCCURENCE 22-FEB-2016
     Route: 058
     Dates: start: 20160108
  5. OXALIPLATIN. [Suspect]
     Active Substance: OXALIPLATIN
     Indication: PANCREATIC CARCINOMA
     Dosage: LAST ADMINISTRATION DATE BEFORE AE OCCURENCE 22-FEB-2016
     Route: 042
     Dates: start: 20151109
  6. FLUOROURACIL. [Suspect]
     Active Substance: FLUOROURACIL
     Indication: PANCREATIC CARCINOMA
     Dosage: LAST ADMINISTRATION DATE BEFORE AE OCCURENCE 22-FEB-2016, DOSIS: 500MG
     Route: 042
     Dates: start: 20151109
  7. CODEINE [Concomitant]
     Active Substance: CODEINE
     Indication: COUGH
     Dosage: ONCE TO TWICE A DAY
     Route: 048
     Dates: start: 20160613

REACTIONS (1)
  - Pneumonia [Unknown]

NARRATIVE: CASE EVENT DATE: 20160313
